FAERS Safety Report 18475664 (Version 2)
Quarter: 2021Q1

REPORT INFORMATION
  Report Type: Spontaneous
  Country: US (occurrence: US)
  Receive Date: 20201107
  Receipt Date: 20210209
  Transmission Date: 20210419
  Serious: Yes (Other)
  Sender: FDA-Public Use
  Company Number: US-DRREDDYS-USA/USA/20/0128710

PATIENT
  Age: 38 Year
  Sex: Female

DRUGS (21)
  1. LETROZOLE TABLETS, USP 2.5 MG [Suspect]
     Active Substance: LETROZOLE
     Indication: PRODUCT USED FOR UNKNOWN INDICATION
  2. LURASIDONE [Concomitant]
     Active Substance: LURASIDONE
     Indication: MANIA
  3. CITALOPRAM [Concomitant]
     Active Substance: CITALOPRAM HYDROBROMIDE
     Indication: MANIA
  4. HALOPERIDOL. [Concomitant]
     Active Substance: HALOPERIDOL
     Indication: BIPOLAR DISORDER
  5. HALOPERIDOL. [Concomitant]
     Active Substance: HALOPERIDOL
     Indication: MANIA
  6. LAMOTRIGINE TABLETS [Concomitant]
     Active Substance: LAMOTRIGINE
     Indication: MANIA
  7. CITALOPRAM [Concomitant]
     Active Substance: CITALOPRAM HYDROBROMIDE
     Indication: DEPRESSION
  8. LURASIDONE [Concomitant]
     Active Substance: LURASIDONE
     Indication: HYPOMANIA
  9. LURASIDONE [Concomitant]
     Active Substance: LURASIDONE
     Indication: BIPOLAR DISORDER
  10. LAMOTRIGINE TABLETS [Concomitant]
     Active Substance: LAMOTRIGINE
     Indication: DEPRESSION
  11. LAMOTRIGINE TABLETS [Concomitant]
     Active Substance: LAMOTRIGINE
     Indication: HYPOMANIA
  12. LURASIDONE [Concomitant]
     Active Substance: LURASIDONE
     Indication: DEPRESSION
  13. LAMOTRIGINE TABLETS [Concomitant]
     Active Substance: LAMOTRIGINE
     Indication: MANIA
  14. CITALOPRAM [Concomitant]
     Active Substance: CITALOPRAM HYDROBROMIDE
     Indication: HYPOMANIA
  15. CITALOPRAM [Concomitant]
     Active Substance: CITALOPRAM HYDROBROMIDE
     Indication: BIPOLAR DISORDER
  16. HALOPERIDOL. [Concomitant]
     Active Substance: HALOPERIDOL
     Indication: MANIA
  17. LURASIDONE [Concomitant]
     Active Substance: LURASIDONE
     Indication: MANIA
  18. LAMOTRIGINE TABLETS [Concomitant]
     Active Substance: LAMOTRIGINE
     Indication: BIPOLAR DISORDER
  19. CITALOPRAM [Concomitant]
     Active Substance: CITALOPRAM HYDROBROMIDE
     Indication: MANIA
  20. HALOPERIDOL. [Concomitant]
     Active Substance: HALOPERIDOL
     Indication: HYPOMANIA
  21. HALOPERIDOL. [Concomitant]
     Active Substance: HALOPERIDOL
     Indication: DEPRESSION

REACTIONS (5)
  - Mania [Unknown]
  - Impulsive behaviour [Unknown]
  - Condition aggravated [Unknown]
  - Thinking abnormal [Unknown]
  - Insomnia [Unknown]
